FAERS Safety Report 22366595 (Version 1)
Quarter: 2023Q2

REPORT INFORMATION
  Report Type: Spontaneous
  Country: DE (occurrence: DE)
  Receive Date: 20230525
  Receipt Date: 20230525
  Transmission Date: 20230722
  Serious: Yes (Other)
  Sender: FDA-Public Use
  Company Number: DE-002147023-NVSC2023DE117203

PATIENT

DRUGS (1)
  1. RUXOLITINIB [Suspect]
     Active Substance: RUXOLITINIB
     Indication: Polycythaemia vera
     Dosage: UNK
     Route: 065
     Dates: start: 201607

REACTIONS (8)
  - Hyperbilirubinaemia [Unknown]
  - Optic ischaemic neuropathy [Unknown]
  - Blindness [Unknown]
  - Cerebral ischaemia [Unknown]
  - TP53 gene mutation [Unknown]
  - TET2 gene mutation [Unknown]
  - Isocitrate dehydrogenase gene mutation [Unknown]
  - Thrombocytosis [Unknown]

NARRATIVE: CASE EVENT DATE: 20200801
